FAERS Safety Report 9174137 (Version 1)
Quarter: 2013Q1

REPORT INFORMATION
  Report Type: Spontaneous
  Country: FR (occurrence: FR)
  Receive Date: 20130320
  Receipt Date: 20130320
  Transmission Date: 20140127
  Serious: Yes (Life-Threatening)
  Sender: FDA-Public Use
  Company Number: FR-PFIZER INC-2013090609

PATIENT
  Age: 82 Year
  Sex: Male

DRUGS (3)
  1. CORDARONE [Suspect]
     Indication: CARDIAC FLUTTER
     Dosage: 200 MG, DAILY
     Route: 048
     Dates: start: 20130114, end: 20130218
  2. CORDARONE [Suspect]
     Dosage: 400 MG, DAILY
     Route: 048
     Dates: start: 20130218, end: 20130220
  3. PRADAXA [Suspect]
     Indication: CARDIAC FLUTTER
     Dosage: 110 MG, 2X/DAY
     Route: 048
     Dates: start: 20130114, end: 20130219

REACTIONS (3)
  - Haematuria [Recovered/Resolved]
  - Epistaxis [Recovered/Resolved]
  - Bronchial haemorrhage [Recovered/Resolved]
